FAERS Safety Report 5232435-1 (Version None)
Quarter: 2007Q1

REPORT INFORMATION
  Report Type: 
  Country: None (occurrence: None)
  Receive Date: 20070205
  Receipt Date: 20070124
  Transmission Date: 20070707
  Serious: Yes (Other)
  Sender: FDA-Public Use
  Company Number: GXKR2007CN01172

PATIENT
  Age: 37 Year
  Sex: Female

DRUGS (4)
  1. ITRACONAZOLE [Suspect]
     Indication: PULMONARY MYCOSIS
  2. VINDESINE (VINDESINE) [Suspect]
     Indication: ACUTE LYMPHOCYTIC LEUKAEMIA
  3. DEXAMETHASONE TAB [Concomitant]
  4. IDARUBICIN HCL [Concomitant]

REACTIONS (5)
  - DRUG INTERACTION [None]
  - ILEUS PARALYTIC [None]
  - LUNG INFECTION [None]
  - NEUROTOXICITY [None]
  - SENSORY LOSS [None]
